FAERS Safety Report 8920936 (Version 3)
Quarter: 2013Q1

REPORT INFORMATION
  Report Type: Spontaneous
  Country: US (occurrence: US)
  Receive Date: 20121122
  Receipt Date: 20130319
  Transmission Date: 20140127
  Serious: Yes (Death, Hospitalization)
  Sender: FDA-Public Use
  Company Number: US-PFIZER INC-2012289405

PATIENT
  Age: 70 Year
  Sex: Male
  Weight: 90.7 kg

DRUGS (4)
  1. SUTENT [Suspect]
     Indication: RENAL CELL CARCINOMA
     Dosage: 50 MG, FIRST 42 DAY CYCLE
     Dates: start: 201202
  2. SUTENT [Suspect]
     Indication: RENAL CELL CARCINOMA
     Dosage: 37.5 MG, (25+12.5MG) SECOND 42 DAY CYCLE
  3. SUTENT [Suspect]
     Indication: RENAL CANCER
     Dosage: 12.5 MG, 1X/DAY
     Route: 048
     Dates: end: 20130216
  4. RAPAFLO [Concomitant]
     Indication: BENIGN PROSTATIC HYPERPLASIA
     Dosage: UNK
     Dates: start: 200912

REACTIONS (13)
  - Myocardial infarction [Fatal]
  - Haemorrhage [Recovered/Resolved]
  - Vomiting [Recovered/Resolved]
  - Diarrhoea [Recovered/Resolved]
  - Fatigue [Unknown]
  - Musculoskeletal pain [Unknown]
  - Gastroenteritis [Unknown]
  - Cough [Unknown]
  - Dry eye [Unknown]
  - Lacrimation increased [Unknown]
  - Skin fissures [Unknown]
  - Hair growth abnormal [Unknown]
  - Blood pressure increased [Unknown]
